FAERS Safety Report 9120998 (Version 3)
Quarter: 2013Q2

REPORT INFORMATION
  Report Type: Spontaneous
  Country: US (occurrence: US)
  Receive Date: 20130226
  Receipt Date: 20130515
  Transmission Date: 20140414
  Serious: Yes (Hospitalization, Other)
  Sender: FDA-Public Use
  Company Number: US-PFIZER INC-2013069292

PATIENT
  Age: 66 Year
  Sex: Female
  Weight: 78.01 kg

DRUGS (4)
  1. CELEBREX [Suspect]
     Dosage: 200 MG, TWO TIMES A DAY
  2. REMICADE [Suspect]
     Indication: RHEUMATOID ARTHRITIS
     Dosage: 80 MG, MONTHLY
     Route: 042
  3. COUMADIN [Interacting]
     Indication: ANTIPHOSPHOLIPID ANTIBODIES
     Dosage: UNK
  4. METOPROLOL [Concomitant]
     Indication: HYPERTENSION
     Dosage: 100 MG, 2X/DAY

REACTIONS (6)
  - Injury [Unknown]
  - Rheumatoid arthritis [Unknown]
  - Pneumonia [Unknown]
  - Antiphospholipid antibodies positive [Unknown]
  - Coagulopathy [Unknown]
  - Drug interaction [Unknown]
